FAERS Safety Report 7986797-2 (Version None)
Quarter: 2011Q4

REPORT INFORMATION
  Report Type: 
  Country: None (occurrence: None)
  Receive Date: 20111216
  Receipt Date: 20110902
  Transmission Date: 20120403
  Serious: No
  Sender: FDA-Public Use
  Company Number: US-BRISTOL-MYERS SQUIBB COMPANY-15999121

PATIENT
  Age: 65 Year
  Sex: Male

DRUGS (6)
  1. POTASSIUM CHLORIDE [Concomitant]
  2. ABILIFY [Suspect]
     Indication: DEPRESSION
     Dosage: STARTED WITH 2MG DAILY
     Route: 048
     Dates: start: 20110819
  3. NEXIUM [Concomitant]
  4. CRESTOR [Concomitant]
  5. WELLBUTRIN [Concomitant]
  6. AMLODIPINE [Concomitant]

REACTIONS (1)
  - ERECTILE DYSFUNCTION [None]
